FAERS Safety Report 20635809 (Version 1)
Quarter: 2022Q1

REPORT INFORMATION
  Report Type: Spontaneous
  Country: US (occurrence: US)
  Receive Date: 20220325
  Receipt Date: 20220325
  Transmission Date: 20220423
  Serious: Yes (Other)
  Sender: FDA-Public Use
  Company Number: US-GLAXOSMITHKLINE-USCH2022011474

PATIENT
  Sex: Female

DRUGS (1)
  1. EXCEDRIN MIGRAINE [Suspect]
     Active Substance: ACETAMINOPHEN\ASPIRIN\CAFFEINE
     Indication: Migraine
     Dosage: 2 DF

REACTIONS (6)
  - Suicidal ideation [Unknown]
  - Nausea [Recovering/Resolving]
  - Anxiety [Unknown]
  - Palpitations [Unknown]
  - Vomiting [Unknown]
  - Drug ineffective [Unknown]
